FAERS Safety Report 14978812 (Version 1)
Quarter: 2018Q2

REPORT INFORMATION
  Report Type: Spontaneous
  Country: JP (occurrence: JP)
  Receive Date: 20180606
  Receipt Date: 20180606
  Transmission Date: 20180711
  Serious: Yes (Life-Threatening, Hospitalization)
  Sender: FDA-Public Use
  Company Number: PHHY2018JP014293

PATIENT
  Age: 76 Year
  Sex: Female

DRUGS (4)
  1. BEVACIZUMAB. [Suspect]
     Active Substance: BEVACIZUMAB
     Indication: COLORECTAL CANCER
     Dosage: 7.5 MG/KG, UNK
     Route: 065
  2. OXALIPLATIN. [Suspect]
     Active Substance: OXALIPLATIN
     Indication: COLORECTAL CANCER
     Dosage: 130 MG/M2, UNK
     Route: 065
  3. XELOX [Suspect]
     Active Substance: CAPECITABINE\OXALIPLATIN
     Indication: COLORECTAL CANCER
     Dosage: UNK
     Route: 065
  4. CAPECITABINE. [Suspect]
     Active Substance: CAPECITABINE
     Indication: COLORECTAL CANCER
     Dosage: 1500 G/M2, QD
     Route: 065

REACTIONS (7)
  - Nausea [Unknown]
  - Moaning [Unknown]
  - Loss of consciousness [Unknown]
  - Anaphylactic shock [Unknown]
  - Cardio-respiratory arrest [Unknown]
  - Malaise [Unknown]
  - Pulse absent [Unknown]
